FAERS Safety Report 13551941 (Version 1)
Quarter: 2017Q2

REPORT INFORMATION
  Report Type: Spontaneous
  Country: US (occurrence: US)
  Receive Date: 20170516
  Receipt Date: 20170516
  Transmission Date: 20170830
  Serious: No
  Sender: FDA-Public Use
  Company Number: US-TEVA-768370ACC

PATIENT
  Sex: Female

DRUGS (1)
  1. COPAXONE [Suspect]
     Active Substance: GLATIRAMER ACETATE
     Dosage: 20 ML DAILY;

REACTIONS (6)
  - Injection site mass [Unknown]
  - Drug intolerance [Unknown]
  - Injection site pain [Unknown]
  - Nausea [Unknown]
  - Injection site bruising [Unknown]
  - Fatigue [Unknown]
